FAERS Safety Report 20908161 (Version 2)
Quarter: 2022Q3

REPORT INFORMATION
  Report Type: Report from Study
  Country: DE (occurrence: DE)
  Receive Date: 20220602
  Receipt Date: 20220708
  Transmission Date: 20221027
  Serious: Yes (Death)
  Sender: FDA-Public Use
  Company Number: DE-ABBVIE-22K-062-4419847-00

PATIENT
  Age: 79 Year
  Sex: Male

DRUGS (2)
  1. CARBIDOPA\LEVODOPA [Suspect]
     Active Substance: CARBIDOPA\LEVODOPA
     Indication: Parkinson^s disease
     Dosage: MD 7.0 ML; CRD 2.0 ML/H; ED 1.0 ML
     Route: 050
     Dates: start: 20220120
  2. CARBIDOPA\LEVODOPA [Suspect]
     Active Substance: CARBIDOPA\LEVODOPA

REACTIONS (1)
  - Death [Fatal]

NARRATIVE: CASE EVENT DATE: 20220410
